FAERS Safety Report 7879821-9 (Version None)
Quarter: 2011Q4

REPORT INFORMATION
  Report Type: 
  Country: None (occurrence: None)
  Receive Date: 20111101
  Receipt Date: 20111025
  Transmission Date: 20120403
  Serious: Yes (Other)
  Sender: FDA-Public Use
  Company Number: US-SHIRE-ALL1-2011-04183

PATIENT

DRUGS (1)
  1. CARBATROL [Suspect]
     Indication: PRODUCT USED FOR UNKNOWN INDICATION
     Dosage: UNK, UNKNOWN
     Route: 015

REACTIONS (4)
  - CONGENITAL CARDIOVASCULAR ANOMALY [None]
  - CONGENITAL ANOMALY [None]
  - NEURAL TUBE DEFECT [None]
  - CONGENITAL ORAL MALFORMATION [None]
